FAERS Safety Report 10191029 (Version 2)
Quarter: 2014Q2

REPORT INFORMATION
  Report Type: Spontaneous
  Country: JP (occurrence: JP)
  Receive Date: 20140523
  Receipt Date: 20140523
  Transmission Date: 20141212
  Serious: Yes (Death, Life-Threatening, Other)
  Sender: FDA-Public Use
  Company Number: JP-ROCHE-800800

PATIENT
  Age: 80 Year
  Sex: Female
  Weight: 45 kg

DRUGS (4)
  1. AVASTIN [Suspect]
     Indication: LUNG ADENOCARCINOMA
     Route: 041
     Dates: start: 20100414, end: 20100721
  2. AVASTIN [Suspect]
     Route: 041
     Dates: start: 201008, end: 20111212
  3. PARAPLATIN [Concomitant]
     Route: 041
     Dates: start: 20100414, end: 20100721
  4. TAXOL [Concomitant]
     Indication: LUNG ADENOCARCINOMA
     Route: 041
     Dates: start: 20100414, end: 20100721

REACTIONS (10)
  - Cerebral haemorrhage [Fatal]
  - Decreased appetite [Unknown]
  - Malnutrition [Unknown]
  - Rash [Unknown]
  - Necrolytic migratory erythema [Recovering/Resolving]
  - Epistaxis [Recovered/Resolved]
  - Blood glucose increased [Unknown]
  - Skin ulcer [Unknown]
  - Decreased appetite [Unknown]
  - Vascular insufficiency [Unknown]
